FAERS Safety Report 8436975-3 (Version None)
Quarter: 2012Q2

REPORT INFORMATION
  Report Type: 
  Country: None (occurrence: None)
  Receive Date: 20120614
  Receipt Date: 20120605
  Transmission Date: 20120825
  Serious: Yes (Death, Hospitalization, Other)
  Sender: FDA-Public Use
  Company Number: NO-PFIZER INC-2012079394

PATIENT
  Age: 96 Year
  Sex: Female

DRUGS (7)
  1. BUMETANIDE [Concomitant]
     Dosage: UNK
  2. RAMIPRIL [Suspect]
     Dosage: 5 MG, DAILY
  3. METOPROLOL SUCCINATE [Concomitant]
     Dosage: UNK
  4. WARFARIN [Concomitant]
     Dosage: UNK
  5. IMDUR [Concomitant]
     Dosage: UNK
  6. SEROQUEL [Suspect]
     Dosage: 25 MG, DAILY
     Route: 065
  7. DIGITOXIN TAB [Suspect]
     Dosage: 50 UG, 3 TIMES PER WEEK
     Route: 065

REACTIONS (5)
  - TOXICITY TO VARIOUS AGENTS [None]
  - RENAL FAILURE CHRONIC [None]
  - VOMITING [None]
  - DEATH [None]
  - NAUSEA [None]
